FAERS Safety Report 9161434 (Version 6)
Quarter: 2016Q3

REPORT INFORMATION
  Report Type: Spontaneous
  Country: US (occurrence: US)
  Receive Date: 20130313
  Receipt Date: 20160715
  Transmission Date: 20161109
  Serious: Yes (Other)
  Sender: FDA-Public Use
  Company Number: US-009507513-1303USA005027

PATIENT
  Sex: Male

DRUGS (1)
  1. PROPECIA [Suspect]
     Active Substance: FINASTERIDE
     Indication: ALOPECIA
     Dosage: 1 MG, UNK
     Route: 048
     Dates: start: 19981101, end: 19990501

REACTIONS (31)
  - Cognitive disorder [Unknown]
  - Semen volume decreased [Unknown]
  - Loss of libido [Unknown]
  - Urinary incontinence [Unknown]
  - Spinal osteoarthritis [Unknown]
  - Laceration [Unknown]
  - Varicocele [Unknown]
  - Sexual dysfunction [Unknown]
  - Osteopenia [Unknown]
  - Fall [Unknown]
  - Muscular weakness [Unknown]
  - Urinary retention [Unknown]
  - Osteoporosis [Unknown]
  - Road traffic accident [Unknown]
  - Hypoaesthesia [Unknown]
  - Muscle spasms [Unknown]
  - Hypoaesthesia [Unknown]
  - Genital hypoaesthesia [Unknown]
  - Neuritis [Unknown]
  - Blood testosterone decreased [Not Recovered/Not Resolved]
  - Fatigue [Unknown]
  - Testicular pain [Unknown]
  - Muscle strain [Unknown]
  - Barrett^s oesophagus [Unknown]
  - Orgasm abnormal [Unknown]
  - Muscle atrophy [Unknown]
  - Erectile dysfunction [Unknown]
  - Sinus headache [Unknown]
  - Post-traumatic neck syndrome [Unknown]
  - Gingival bleeding [Unknown]
  - Epistaxis [Unknown]

NARRATIVE: CASE EVENT DATE: 1999
